FAERS Safety Report 25243200 (Version 2)
Quarter: 2025Q2

REPORT INFORMATION
  Report Type: Spontaneous
  Country: US (occurrence: US)
  Receive Date: 20250428
  Receipt Date: 20250630
  Transmission Date: 20250716
  Serious: No
  Sender: CSL BEHRING
  Company Number: US-BEH-2025202777

PATIENT
  Age: 74 Year
  Sex: Male
  Weight: 68.027 kg

DRUGS (1)
  1. ZEMAIRA [Suspect]
     Active Substance: .ALPHA.1-PROTEINASE INHIBITOR HUMAN
     Indication: Alpha-1 antitrypsin deficiency
     Dosage: UNK, QW
     Route: 042

REACTIONS (6)
  - Influenza [Unknown]
  - Dyspnoea [Unknown]
  - Cough [Unknown]
  - Sputum increased [Unknown]
  - Therapy interrupted [Unknown]
  - Product distribution issue [Unknown]
